FAERS Safety Report 12347886 (Version 1)
Quarter: 2016Q2

REPORT INFORMATION
  Report Type: Spontaneous
  Country: SK (occurrence: SK)
  Receive Date: 20160509
  Receipt Date: 20160509
  Transmission Date: 20160815
  Serious: Yes (Hospitalization)
  Sender: FDA-Public Use
  Company Number: PHHY2016SK060461

PATIENT
  Age: 76 Year
  Sex: Female

DRUGS (3)
  1. PAZOPANIB [Suspect]
     Active Substance: PAZOPANIB
     Dosage: 400 MG, QD
     Route: 048
     Dates: start: 201404
  2. PAZOPANIB [Suspect]
     Active Substance: PAZOPANIB
     Indication: PRODUCT USED FOR UNKNOWN INDICATION
     Dosage: 400 MG, QD
     Route: 048
     Dates: start: 201308, end: 201309
  3. PAZOPANIB [Suspect]
     Active Substance: PAZOPANIB
     Dosage: 600 MG, QD
     Route: 048
     Dates: start: 201309, end: 201403

REACTIONS (5)
  - Circulatory collapse [Recovered/Resolved with Sequelae]
  - Brain oedema [Recovered/Resolved]
  - Hemiparesis [Not Recovered/Not Resolved]
  - Oedema [Recovered/Resolved]
  - Mobility decreased [Not Recovered/Not Resolved]

NARRATIVE: CASE EVENT DATE: 201312
